FAERS Safety Report 17285522 (Version 2)
Quarter: 2020Q1

REPORT INFORMATION
  Report Type: Spontaneous
  Country: US (occurrence: US)
  Receive Date: 20200117
  Receipt Date: 20200121
  Transmission Date: 20200409
  Serious: No
  Sender: FDA-Public Use
  Company Number: US-BIOGEN-2018BI00544756

PATIENT
  Age: 57 Year
  Sex: Female

DRUGS (3)
  1. ZINBRYTA [Suspect]
     Active Substance: DACLIZUMAB
     Route: 050
     Dates: end: 20180228
  2. ZINBRYTA [Suspect]
     Active Substance: DACLIZUMAB
     Indication: MULTIPLE SCLEROSIS
     Route: 050
     Dates: start: 20170915, end: 20180228
  3. ZINBRYTA [Suspect]
     Active Substance: DACLIZUMAB
     Route: 050
     Dates: end: 20180501

REACTIONS (5)
  - Alopecia [Not Recovered/Not Resolved]
  - Malaise [Unknown]
  - Multiple sclerosis [Unknown]
  - Emotional distress [Unknown]
  - Rash [Recovered/Resolved]

NARRATIVE: CASE EVENT DATE: 20180228
